FAERS Safety Report 21710419 (Version 1)
Quarter: 2022Q4

REPORT INFORMATION
  Report Type: Spontaneous
  Country: CA (occurrence: CA)
  Receive Date: 20221211
  Receipt Date: 20221211
  Transmission Date: 20230112
  Serious: Yes (Death, Other)
  Sender: FDA-Public Use
  Company Number: CA-BRISTOL-MYERS SQUIBB COMPANY-2022-150048

PATIENT
  Age: 69 Year
  Sex: Male

DRUGS (11)
  1. ABRAXANE [Suspect]
     Active Substance: PACLITAXEL
     Indication: Pancreatic carcinoma
     Dosage: CYCLICAL
     Route: 041
  2. GEMCITABINE HYDROCHLORIDE [Concomitant]
     Active Substance: GEMCITABINE HYDROCHLORIDE
     Indication: Pancreatic carcinoma
     Dosage: CYCLICAL
     Route: 041
  3. DEXAMETHASONE [Concomitant]
     Active Substance: DEXAMETHASONE
     Indication: Prophylaxis
  4. DEXAMETHASONE [Concomitant]
     Active Substance: DEXAMETHASONE
     Indication: Increased appetite
  5. ACETAMINOPHEN [Concomitant]
     Active Substance: ACETAMINOPHEN
  6. DURVALUMAB [Concomitant]
     Active Substance: DURVALUMAB
     Indication: Pancreatic carcinoma metastatic
  7. HYDROMORPHONE [Concomitant]
     Active Substance: HYDROMORPHONE
  8. HYDROMORPHONE [Concomitant]
     Active Substance: HYDROMORPHONE
     Indication: Back pain
  9. METHOCARBAMOL [Concomitant]
     Active Substance: METHOCARBAMOL
  10. ONDANSETRON HYDROCHLORIDE [Concomitant]
     Active Substance: ONDANSETRON HYDROCHLORIDE
     Indication: Prophylaxis
  11. TREMELIMUMAB [Concomitant]
     Active Substance: TREMELIMUMAB
     Indication: Pancreatic carcinoma metastatic

REACTIONS (1)
  - Death [Fatal]
